FAERS Safety Report 9791551 (Version 2)
Quarter: 2014Q1

REPORT INFORMATION
  Report Type: Spontaneous
  Country: US (occurrence: US)
  Receive Date: 20140101
  Receipt Date: 20140117
  Transmission Date: 20141002
  Serious: No
  Sender: FDA-Public Use
  Company Number: US-009507513-1312USA009595

PATIENT
  Age: 59 Year
  Sex: Female
  Weight: 54.42 kg

DRUGS (2)
  1. OXYTROL FOR WOMEN [Suspect]
     Indication: PRODUCT USED FOR UNKNOWN INDICATION
     Dosage: 1 DF, Q4D
     Route: 062
     Dates: start: 20131201, end: 201312
  2. OXYTROL FOR WOMEN [Suspect]
     Dosage: 1 DF, ONCE
     Route: 062
     Dates: start: 2013

REACTIONS (5)
  - Pain of skin [Recovered/Resolved]
  - Papule [Recovered/Resolved]
  - Erythema [Recovered/Resolved]
  - Pruritus [Recovered/Resolved]
  - Scar [Not Recovered/Not Resolved]
